FAERS Safety Report 23738680 (Version 3)
Quarter: 2024Q3

REPORT INFORMATION
  Report Type: Report from Study
  Country: US (occurrence: US)
  Receive Date: 20240412
  Receipt Date: 20240708
  Transmission Date: 20241017
  Serious: Yes (Hospitalization, Other)
  Sender: ABBVIE
  Company Number: US-ABBVIE-5713174

PATIENT
  Age: 65 Year
  Sex: Male

DRUGS (22)
  1. VENCLEXTA [Suspect]
     Active Substance: VENETOCLAX
     Indication: Myelodysplastic syndrome
     Dosage: TAKE 4 TABLET(S) BY MOUTH EVERY DAY FOR 14 DAYS THEN 14 DAYS OFF?FORM STRENGTH: 100MG
     Route: 048
  2. VENCLEXTA [Suspect]
     Active Substance: VENETOCLAX
     Indication: Myelodysplastic syndrome
     Dosage: FORM STRENGTH: 100MILLIGRAM
     Route: 048
     Dates: start: 202306
  3. VENCLEXTA [Suspect]
     Active Substance: VENETOCLAX
     Indication: Myelodysplastic syndrome
     Dosage: TAKE 4 TABLET(S) BY MOUTH EVERY DAY FOR 14 DAYS THEN 14 DAYS OFF
     Route: 048
  4. VENCLEXTA [Suspect]
     Active Substance: VENETOCLAX
     Indication: Myelodysplastic syndrome
     Route: 048
  5. VENCLEXTA [Suspect]
     Active Substance: VENETOCLAX
     Indication: Myelodysplastic syndrome
     Route: 048
  6. ALTEPLASE [Concomitant]
     Active Substance: ALTEPLASE
     Indication: Product used for unknown indication
  7. SAQUINAVIR [Concomitant]
     Active Substance: SAQUINAVIR
     Indication: Product used for unknown indication
  8. ZELBORAF [Concomitant]
     Active Substance: VEMURAFENIB
     Indication: Product used for unknown indication
  9. PULMOZYME [Concomitant]
     Active Substance: DORNASE ALFA
     Indication: Transplant
  10. RIBAVIRIN [Concomitant]
     Active Substance: RIBAVIRIN
     Indication: Product used for unknown indication
  11. RITUXIMAB [Concomitant]
     Active Substance: RITUXIMAB
     Indication: Product used for unknown indication
  12. TOCILIZUMAB [Concomitant]
     Active Substance: TOCILIZUMAB
     Indication: Product used for unknown indication
  13. TRASTUZUMAB [Concomitant]
     Active Substance: TRASTUZUMAB
     Indication: Product used for unknown indication
  14. RANIBIZUMAB [Concomitant]
     Active Substance: RANIBIZUMAB
     Indication: Respiratory disorder
  15. IBANDRONIC ACID [Concomitant]
     Active Substance: IBANDRONIC ACID
     Indication: Product used for unknown indication
  16. ENFUVIRTIDE [Concomitant]
     Active Substance: ENFUVIRTIDE
     Indication: Product used for unknown indication
  17. VALGANCICLOVIR [Concomitant]
     Active Substance: VALGANCICLOVIR
     Indication: Viral infection
  18. PENTAFUSIDE [Concomitant]
     Indication: Product used for unknown indication
  19. PERJETA [Concomitant]
     Active Substance: PERTUZUMAB
     Indication: Product used for unknown indication
  20. MYCOPHENOLATE MOFETIL [Concomitant]
     Active Substance: MYCOPHENOLATE MOFETIL
     Indication: Viral infection
  21. IBANDRONATE SODIUM [Concomitant]
     Active Substance: IBANDRONATE SODIUM
     Indication: Product used for unknown indication
  22. TENECTEPLASE [Concomitant]
     Active Substance: TENECTEPLASE
     Indication: Product used for unknown indication

REACTIONS (5)
  - Cardiac rehabilitation therapy [Unknown]
  - Off label use [Unknown]
  - Memory impairment [Recovering/Resolving]
  - Cerebrovascular accident [Recovering/Resolving]
  - Communication disorder [Unknown]

NARRATIVE: CASE EVENT DATE: 20230601
